FAERS Safety Report 19484855 (Version 2)
Quarter: 2021Q3

REPORT INFORMATION
  Report Type: Spontaneous
  Country: MY (occurrence: MY)
  Receive Date: 20210701
  Receipt Date: 20210716
  Transmission Date: 20211014
  Serious: Yes (Life-Threatening)
  Sender: FDA-Public Use
  Company Number: MY-B.I. PHARMACEUTICALS,INC./RIDGEFIELD-2021-BI-112230

PATIENT
  Age: 52 Year
  Sex: Female

DRUGS (10)
  1. REPARIL [ESCIN] [Concomitant]
     Indication: POST PROCEDURAL SWELLING
     Dosage: 1 DF DOSAGE FORM
  2. JARDIANCE DUO [Suspect]
     Active Substance: EMPAGLIFLOZIN\METFORMIN HYDROCHLORIDE
     Indication: DIABETES MELLITUS
     Dosage: 1 DF DOSAGE FORM (12.5MG/850MG)
     Route: 048
     Dates: start: 20201107, end: 20201109
  3. OMEZOLE [OMEPRAZOLE] [Concomitant]
     Indication: PROPHYLAXIS AGAINST GASTROINTESTINAL ULCER
  4. OLENZA [Concomitant]
     Indication: SCHIZOPHRENIA
  5. ESPRAN [Concomitant]
     Active Substance: ESCITALOPRAM OXALATE
     Indication: SCHIZOPHRENIA
  6. METHYCOBAL [Concomitant]
     Active Substance: METHYLCOBALAMIN
     Indication: NEUROPATHY PERIPHERAL
     Dosage: 1 DF DOSAGE FORM
  7. ZINNAT [CEFUROXIME SODIUM] [Concomitant]
     Active Substance: CEFUROXIME SODIUM
     Indication: INFECTION PROPHYLAXIS
  8. VYTORIN [Concomitant]
     Active Substance: EZETIMIBE\SIMVASTATIN
     Indication: BLOOD CHOLESTEROL
     Dosage: 10/20 MG. 0.5 DF DOSAGE FORM
  9. LEGALON [Concomitant]
     Active Substance: DIETARY SUPPLEMENT\HERBALS\MILK THISTLE
     Indication: LIVER DISORDER
     Dosage: 1 DF DOSAGE FORM
  10. NUROFEN EXPRESS [IBUPROFEN] [Concomitant]
     Active Substance: IBUPROFEN
     Indication: POST PROCEDURAL INFLAMMATION
     Dosage: CAPLET. 1 DF DOSAGE FORM

REACTIONS (1)
  - Metabolic acidosis [Recovered/Resolved]

NARRATIVE: CASE EVENT DATE: 20201109
